FAERS Safety Report 8625543-6 (Version None)
Quarter: 2012Q3

REPORT INFORMATION
  Report Type: 
  Country: None (occurrence: None)
  Receive Date: 20120827
  Receipt Date: 20120821
  Transmission Date: 20120928
  Serious: No
  Sender: FDA-Public Use
  Company Number: US-TEVA-355279USA

PATIENT
  Sex: Male

DRUGS (2)
  1. PROAIR HFA [Suspect]
  2. QVAR 40 [Concomitant]

REACTIONS (1)
  - DRUG ADMINISTRATION ERROR [None]
